FAERS Safety Report 15678500 (Version 1)
Quarter: 2018Q4

REPORT INFORMATION
  Report Type: Spontaneous
  Country: US (occurrence: US)
  Receive Date: 20181130
  Receipt Date: 20181130
  Transmission Date: 20190205
  Serious: Yes (Hospitalization)
  Sender: FDA-Public Use
  Company Number: None

PATIENT
  Age: 8 Year
  Sex: Female

DRUGS (4)
  1. DEKAS PLUS [Concomitant]
  2. AQUADEKS [Suspect]
     Active Substance: MINERALS\VITAMINS
     Indication: CYSTIC FIBROSIS
     Route: 048
     Dates: start: 20130904
  3. SODIUM CHLORIDE. [Concomitant]
     Active Substance: SODIUM CHLORIDE
  4. PULMOZYME [Suspect]
     Active Substance: DORNASE ALFA
     Indication: CYSTIC FIBROSIS
     Route: 055
     Dates: start: 20150825

REACTIONS (2)
  - Cystic fibrosis [None]
  - Disease complication [None]

NARRATIVE: CASE EVENT DATE: 20181113
